FAERS Safety Report 5731509-6 (Version None)
Quarter: 2008Q2

REPORT INFORMATION
  Report Type: 
  Country: None (occurrence: None)
  Receive Date: 20080508
  Receipt Date: 20080429
  Transmission Date: 20081010
  Serious: Yes (Other)
  Sender: FDA-Public Use
  Company Number: PHHO2008CA05667

PATIENT
  Age: 46 Year
  Sex: Male
  Weight: 77.3 kg

DRUGS (1)
  1. MYCOPHENOLIC ACID [Suspect]
     Indication: RENAL TRANSPLANT
     Dosage: 1440 MG, BID
     Route: 048
     Dates: start: 20080319

REACTIONS (2)
  - ABDOMINAL PAIN [None]
  - COLONIC PSEUDO-OBSTRUCTION [None]
